FAERS Safety Report 24059786 (Version 1)
Quarter: 2024Q3

REPORT INFORMATION
  Report Type: Spontaneous
  Country: US (occurrence: US)
  Receive Date: 20240708
  Receipt Date: 20240708
  Transmission Date: 20241016
  Serious: No
  Sender: BAYER
  Company Number: US-BAYER-2024A095528

PATIENT
  Age: 66 Year
  Sex: Female

DRUGS (2)
  1. BETASERON [Suspect]
     Active Substance: INTERFERON BETA-1B
  2. DEVICE [Suspect]
     Active Substance: DEVICE

REACTIONS (2)
  - Incorrect dose administered by device [None]
  - Drug delivery system malfunction [None]
